FAERS Safety Report 8511025-9 (Version None)
Quarter: 2012Q3

REPORT INFORMATION
  Report Type: 
  Country: None (occurrence: None)
  Receive Date: 20120716
  Receipt Date: 20120706
  Transmission Date: 20120928
  Serious: Yes (Hospitalization, Other)
  Sender: FDA-Public Use
  Company Number: US-JNJFOC-20120607765

PATIENT
  Sex: Female
  Weight: 85.73 kg

DRUGS (8)
  1. METOPROLOL TARTRATE [Concomitant]
     Indication: HYPERTENSION
     Route: 048
  2. REMICADE [Suspect]
     Route: 042
     Dates: start: 20120202
  3. KLONOPIN [Concomitant]
     Indication: RESTLESS LEGS SYNDROME
     Route: 048
  4. METFORMIN HYDROCHLORIDE [Concomitant]
     Indication: DIABETES MELLITUS
     Route: 065
  5. REMICADE [Suspect]
     Indication: RHEUMATOID ARTHRITIS
     Route: 042
  6. LANTUS [Concomitant]
     Indication: DIABETES MELLITUS
     Route: 065
  7. REMICADE [Suspect]
     Route: 042
     Dates: start: 20120502
  8. AMLODIPINE [Concomitant]
     Indication: PRODUCT USED FOR UNKNOWN INDICATION
     Route: 048

REACTIONS (3)
  - BACK PAIN [None]
  - INTERVERTEBRAL DISC PROTRUSION [None]
  - BODY HEIGHT DECREASED [None]
